FAERS Safety Report 4758417-1 (Version None)
Quarter: 2005Q3

REPORT INFORMATION
  Report Type: 
  Country: None (occurrence: None)
  Receive Date: 20050830
  Receipt Date: 20050830
  Transmission Date: 20060218
  Serious: Yes (Life-Threatening)
  Sender: FDA-Public Use
  Company Number: None

PATIENT
  Sex: Female

DRUGS (2)
  1. METHOTREXATE [Suspect]
     Indication: RHEUMATOID ARTHRITIS
     Dosage: 2.5MG    15 MG PER WEEK   PO
     Route: 048
  2. INFLIXIMAB      CENTOCOR [Suspect]
     Indication: RHEUMATOID ARTHRITIS
     Dosage: 5MG/KG   EVERY 8 WEEKS    IV DRIP
     Route: 041

REACTIONS (1)
  - LYMPHOMA [None]
